FAERS Safety Report 6333370-8 (Version None)
Quarter: 2009Q3

REPORT INFORMATION
  Report Type: 
  Country: None (occurrence: None)
  Receive Date: 20090828
  Receipt Date: 20090825
  Transmission Date: 20100115
  Serious: Yes (Death, Hospitalization)
  Sender: FDA-Public Use
  Company Number: FR-BAXTER-2009BH012926

PATIENT
  Age: 64 Year
  Sex: Female

DRUGS (28)
  1. HOLOXAN BAXTER [Suspect]
     Indication: DIFFUSE LARGE B-CELL LYMPHOMA
     Route: 042
     Dates: start: 20090119, end: 20090121
  2. HOLOXAN BAXTER [Suspect]
     Route: 042
     Dates: start: 20090216, end: 20090218
  3. HOLOXAN BAXTER [Suspect]
     Route: 042
     Dates: start: 20090318, end: 20090320
  4. UROMITEXAN BAXTER [Suspect]
     Indication: DIFFUSE LARGE B-CELL LYMPHOMA
     Route: 042
     Dates: start: 20090119, end: 20090121
  5. UROMITEXAN BAXTER [Suspect]
     Route: 042
     Dates: start: 20080216, end: 20090218
  6. UROMITEXAN BAXTER [Suspect]
     Route: 048
     Dates: start: 20080216, end: 20090218
  7. MITOXANTRONE GENERIC [Suspect]
     Indication: DIFFUSE LARGE B-CELL LYMPHOMA
     Route: 042
     Dates: start: 20090119, end: 20090119
  8. MITOXANTRONE GENERIC [Suspect]
     Route: 042
     Dates: start: 20090216, end: 20090216
  9. MITOXANTRONE GENERIC [Suspect]
     Route: 042
     Dates: start: 20090318, end: 20090318
  10. ETOPOSIDE [Suspect]
     Indication: DIFFUSE LARGE B-CELL LYMPHOMA
     Route: 042
     Dates: start: 20090422, end: 20090425
  11. ETOPOSIDE [Suspect]
     Route: 042
     Dates: start: 20090119, end: 20090121
  12. ETOPOSIDE [Suspect]
     Route: 042
     Dates: start: 20090216, end: 20090218
  13. ETOPOSIDE [Suspect]
     Route: 042
     Dates: start: 20090318, end: 20090320
  14. MABTHERA [Suspect]
     Indication: DIFFUSE LARGE B-CELL LYMPHOMA
     Route: 042
     Dates: start: 20090216, end: 20090216
  15. MABTHERA [Suspect]
     Route: 042
     Dates: start: 20090318, end: 20090318
  16. MABTHERA [Suspect]
     Route: 042
     Dates: start: 20090119, end: 20090119
  17. BICNU [Suspect]
     Indication: DIFFUSE LARGE B-CELL LYMPHOMA
     Route: 042
     Dates: start: 20090421, end: 20090421
  18. ARACYTINE [Suspect]
     Indication: DIFFUSE LARGE B-CELL LYMPHOMA
     Route: 042
     Dates: start: 20090422, end: 20090425
  19. ALKERAN [Suspect]
     Indication: DIFFUSE LARGE B-CELL LYMPHOMA
     Route: 042
     Dates: start: 20090426, end: 20090426
  20. FASTURTEC [Suspect]
     Indication: DRUG USE FOR UNKNOWN INDICATION
     Route: 065
     Dates: start: 20090119, end: 20090119
  21. VALACYCLOVIR HCL [Concomitant]
     Indication: DRUG USE FOR UNKNOWN INDICATION
     Route: 065
     Dates: start: 20090526
  22. XANAX [Concomitant]
     Indication: DRUG USE FOR UNKNOWN INDICATION
     Route: 065
  23. PRIMPERAN [Concomitant]
     Indication: DRUG USE FOR UNKNOWN INDICATION
     Route: 065
  24. BICARBONATE MOUTHWASH [Concomitant]
     Indication: DRUG USE FOR UNKNOWN INDICATION
     Route: 065
  25. DIFFU K [Concomitant]
     Indication: DRUG USE FOR UNKNOWN INDICATION
     Route: 065
  26. FOLIC ACID [Concomitant]
     Indication: DRUG USE FOR UNKNOWN INDICATION
     Route: 065
  27. EPOETIN BETA [Concomitant]
     Indication: DRUG USE FOR UNKNOWN INDICATION
     Route: 065
     Dates: start: 20090609
  28. ZOLOFT [Concomitant]
     Indication: DRUG USE FOR UNKNOWN INDICATION
     Route: 065
     Dates: start: 20090501

REACTIONS (4)
  - COUGH [None]
  - DEPRESSION [None]
  - PANCYTOPENIA [None]
  - PYREXIA [None]
